FAERS Safety Report 11328622 (Version 2)
Quarter: 2015Q3

REPORT INFORMATION
  Report Type: Spontaneous
  Country: FR (occurrence: FR)
  Receive Date: 20150731
  Receipt Date: 20150803
  Transmission Date: 20151125
  Serious: Yes (Hospitalization)
  Sender: FDA-Public Use
  Company Number: FR-PFIZER INC-2015252529

PATIENT
  Age: 65 Year
  Sex: Female
  Weight: 84 kg

DRUGS (14)
  1. LYRICA [Suspect]
     Active Substance: PREGABALIN
     Indication: NEURALGIA
     Dosage: 75 MG 2 DOSAGE FORMS DAILY
     Route: 048
     Dates: start: 20150323, end: 201504
  2. BISOCE [Concomitant]
     Active Substance: BISOPROLOL
     Dosage: 1 DF OF 10 MG, DAILY
     Route: 048
  3. LASILIX [Concomitant]
     Active Substance: FUROSEMIDE
     Dosage: 1 DF OF 40 MG, DAILY
     Route: 048
  4. XANAX [Concomitant]
     Active Substance: ALPRAZOLAM
     Dosage: 1 DF OF 0.25 MG, DAILY
     Route: 048
     Dates: end: 201504
  5. KALEORID LP [Concomitant]
     Dosage: 1000 MG TWO DF, DAILY
     Route: 048
  6. NOVORAPID [Concomitant]
     Active Substance: INSULIN ASPART
     Dosage: 8 IU IN THE MORNING, 8 IU AT NOON, 6 IU IN THE EVENING
     Route: 058
  7. HEMIGOXINE NATIVELLE [Suspect]
     Active Substance: DIGOXIN
     Dosage: 0.125 MG ONE DOSAGE FORM, DAILY
     Route: 048
  8. LASILIX SPECIAL [Concomitant]
     Active Substance: FUROSEMIDE
     Dosage: 0.25 DF OF 500 MG, IN THE MORNING
     Route: 048
  9. CYMBALTA [Concomitant]
     Active Substance: DULOXETINE HYDROCHLORIDE
     Dosage: 1 DF, DAILY
     Route: 048
  10. LANTUS [Concomitant]
     Active Substance: INSULIN GLARGINE
     Dosage: 10 IU, IN THE EVENING
     Route: 058
  11. TRIATEC [Concomitant]
     Active Substance: RAMIPRIL
     Dosage: 5 MG ONE DOSAGE FORM, IN THE MORNING
     Route: 048
  12. PREVISCAN [Concomitant]
     Active Substance: FLUINDIONE
     Dosage: 0.5 DF OF 20 MG, DAILY
     Route: 048
  13. LEVOTHYROX [Concomitant]
     Active Substance: LEVOTHYROXINE
     Dosage: 1 DF OF 75 ?G, IN THE MORNING
     Route: 048
  14. INEXIUM [Concomitant]
     Active Substance: ESOMEPRAZOLE
     Dosage: 1 DF OF 40 MG, DAILY
     Route: 048

REACTIONS (7)
  - Asthenia [Recovered/Resolved]
  - Activities of daily living impaired [Recovered/Resolved]
  - Dysstasia [Recovered/Resolved]
  - Disorientation [Recovered/Resolved]
  - Cardioactive drug level increased [Recovered/Resolved]
  - General physical health deterioration [Recovered/Resolved]
  - Somnolence [Recovered/Resolved]

NARRATIVE: CASE EVENT DATE: 20150330
